FAERS Safety Report 14161701 (Version 5)
Quarter: 2017Q4

REPORT INFORMATION
  Report Type: Spontaneous
  Country: US (occurrence: US)
  Receive Date: 20171106
  Receipt Date: 20171121
  Transmission Date: 20180321
  Serious: No
  Sender: FDA-Public Use
  Company Number: PHEH2017US035841

PATIENT
  Sex: Male
  Weight: 87.53 kg

DRUGS (4)
  1. LABETALOL HYDROCHLORIDE TABLETS, USP [Suspect]
     Active Substance: LABETALOL HYDROCHLORIDE
     Indication: BLOOD PRESSURE INCREASED
     Dosage: 100 MG, QD
     Route: 048
  2. DOXAZOSIN [Concomitant]
     Active Substance: DOXAZOSIN\DOXAZOSIN MESYLATE
     Indication: BLOOD PRESSURE INCREASED
     Dosage: 2 MG, QD
     Route: 048
  3. BRIMONIDINE [Suspect]
     Active Substance: BRIMONIDINE TARTRATE
     Indication: GLAUCOMA
     Dosage: 1 GTT, BID
     Route: 047
  4. BENAZEPRIL [Concomitant]
     Active Substance: BENAZEPRIL HYDROCHLORIDE
     Indication: BLOOD PRESSURE INCREASED
     Dosage: 10 MG, QD
     Route: 048

REACTIONS (4)
  - Dysgeusia [Unknown]
  - Hyperhidrosis [Not Recovered/Not Resolved]
  - Somnolence [Unknown]
  - Sinus congestion [Not Recovered/Not Resolved]
